FAERS Safety Report 5987495-7 (Version None)
Quarter: 2008Q4

REPORT INFORMATION
  Report Type: 
  Country: None (occurrence: None)
  Receive Date: 20081209
  Receipt Date: 20081204
  Transmission Date: 20090506
  Serious: Yes (Death)
  Sender: FDA-Public Use
  Company Number: CA-NOVOPROD-282062

PATIENT

DRUGS (1)
  1. NIASTASE [Suspect]
     Indication: HAEMORRHAGE

REACTIONS (1)
  - DEATH [None]
